FAERS Safety Report 5226962-0 (Version None)
Quarter: 2007Q1

REPORT INFORMATION
  Report Type: 
  Country: None (occurrence: None)
  Receive Date: 20070202
  Receipt Date: 20070125
  Transmission Date: 20070707
  Serious: Yes (Hospitalization, Other)
  Sender: FDA-Public Use
  Company Number: PHNU2007DE00679

PATIENT
  Age: 5 Year
  Sex: Male

DRUGS (5)
  1. SANDIMMUNE [Suspect]
     Indication: RENAL TRANSPLANT
     Dosage: UNK, UNK
     Route: 042
     Dates: start: 20061201
  2. CELLCEPT [Concomitant]
  3. CORTISONE ACETATE [Concomitant]
  4. ANTIBIOTICS [Concomitant]
  5. ANTIHYPERTENSIVE DRUGS [Concomitant]

REACTIONS (2)
  - ABDOMINAL ADHESIONS [None]
  - ILEUS [None]
